FAERS Safety Report 9501948 (Version 1)
Quarter: 2013Q3

REPORT INFORMATION
  Report Type: Spontaneous
  Country: SE (occurrence: SE)
  Receive Date: 20130905
  Receipt Date: 20130905
  Transmission Date: 20140515
  Serious: Yes (Hospitalization, Other)
  Sender: FDA-Public Use
  Company Number: SE-MERCK-1308SWE015177

PATIENT
  Age: 61 Year
  Sex: Female

DRUGS (2)
  1. REMERON [Suspect]
     Indication: DEPRESSION
     Dosage: UNK
     Route: 048
     Dates: start: 2004
  2. XANOR [Concomitant]

REACTIONS (8)
  - Colon cancer [Unknown]
  - Colon operation [Unknown]
  - Vomiting [Unknown]
  - Malaise [Unknown]
  - Oral pain [Not Recovered/Not Resolved]
  - Lip swelling [Unknown]
  - Oropharyngeal discomfort [Not Recovered/Not Resolved]
  - Tongue disorder [Unknown]
